FAERS Safety Report 9103001 (Version 3)
Quarter: 2013Q2

REPORT INFORMATION
  Report Type: Spontaneous
  Country: US (occurrence: US)
  Receive Date: 20130219
  Receipt Date: 20130628
  Transmission Date: 20140414
  Serious: Yes (Hospitalization)
  Sender: FDA-Public Use
  Company Number: US-JNJFOC-20130203105

PATIENT
  Age: 48 Year
  Sex: Female
  Weight: 58.97 kg

DRUGS (12)
  1. DURAGESIC [Suspect]
     Indication: PAIN
     Route: 062
  2. DURAGESIC [Suspect]
     Indication: PAIN
     Dosage: 100 UG/HR +  25 UG/HR
     Route: 062
  3. LORAZEPAM [Concomitant]
     Indication: NERVOUSNESS
     Route: 048
  4. LITHIUM [Concomitant]
     Indication: BIPOLAR DISORDER
     Route: 048
  5. TEMAZEPAM [Concomitant]
     Indication: SLEEP DISORDER
     Route: 048
  6. OXYCODONE/PARACETAMOL [Concomitant]
     Indication: PAIN
     Dosage: 10-325MG
     Route: 048
  7. NEXIUM [Concomitant]
     Indication: GASTRIC DISORDER
     Route: 048
  8. CYMBALTA [Concomitant]
     Route: 048
  9. ABILIFY [Concomitant]
     Indication: DEPRESSION
     Route: 048
  10. XOPENEX [Concomitant]
     Indication: ASTHMA
     Route: 048
  11. O2 [Concomitant]
     Indication: ASTHMA
     Dosage: AT NIGHT
     Route: 055
  12. PERCOCET [Concomitant]
     Route: 065

REACTIONS (9)
  - Intervertebral disc protrusion [Unknown]
  - Arthritis [Unknown]
  - Pain [Not Recovered/Not Resolved]
  - Apathy [Unknown]
  - Foot deformity [Unknown]
  - Bunion [Unknown]
  - Drug dose omission [Not Recovered/Not Resolved]
  - Drug withdrawal syndrome [Not Recovered/Not Resolved]
  - Product quality issue [Recovered/Resolved]
